FAERS Safety Report 12483830 (Version 4)
Quarter: 2019Q1

REPORT INFORMATION
  Report Type: Spontaneous
  Country: FR (occurrence: FR)
  Receive Date: 20160621
  Receipt Date: 20190111
  Transmission Date: 20190417
  Serious: Yes (Disabling, Other)
  Sender: FDA-Public Use
  Company Number: FR-009507513-1606FRA003587

PATIENT
  Age: 63 Year
  Sex: Female
  Weight: 68.3 kg

DRUGS (3)
  1. KEYTRUDA [Suspect]
     Active Substance: PEMBROLIZUMAB
     Indication: METASTATIC MALIGNANT MELANOMA
     Dosage: 2 MG/KG, Q3W
     Route: 042
     Dates: start: 201509, end: 20160523
  2. KEYTRUDA [Suspect]
     Active Substance: PEMBROLIZUMAB
     Indication: MALIGNANT MELANOMA
  3. LOXAPAC (LOXAPINE SUCCINATE) [Concomitant]
     Active Substance: LOXAPINE SUCCINATE
     Dosage: 10 DROPS, QPM
     Route: 048

REACTIONS (3)
  - Malignant neoplasm progression [Unknown]
  - Malignant melanoma [Not Recovered/Not Resolved]
  - Drug ineffective [Not Recovered/Not Resolved]

NARRATIVE: CASE EVENT DATE: 20160524
